FAERS Safety Report 5801803-9 (Version None)
Quarter: 2008Q3

REPORT INFORMATION
  Report Type: 
  Country: None (occurrence: None)
  Receive Date: 20080707
  Receipt Date: 20080630
  Transmission Date: 20090109
  Serious: Yes (Hospitalization)
  Sender: FDA-Public Use
  Company Number: US-KINGPHARMUSA00001-K200800762

PATIENT

DRUGS (1)
  1. SEPTRA [Suspect]
     Indication: SINUSITIS

REACTIONS (15)
  - ACUTE FEBRILE NEUTROPHILIC DERMATOSIS [None]
  - ARTHRITIS [None]
  - CHILLS [None]
  - DRUG HYPERSENSITIVITY [None]
  - DYSPNOEA [None]
  - DYSPNOEA EXERTIONAL [None]
  - FATIGUE [None]
  - HYPOTENSION [None]
  - LUNG CONSOLIDATION [None]
  - NAUSEA [None]
  - PAIN [None]
  - PLEURITIC PAIN [None]
  - PYREXIA [None]
  - SCLERITIS [None]
  - SKIN PLAQUE [None]
